FAERS Safety Report 8985437 (Version 2)
Quarter: 2013Q1

REPORT INFORMATION
  Report Type: Spontaneous
  Country: US (occurrence: US)
  Receive Date: 20121226
  Receipt Date: 20130110
  Transmission Date: 20140127
  Serious: Yes (Life-Threatening)
  Sender: FDA-Public Use
  Company Number: US-JNJFOC-20120904023

PATIENT
  Sex: Male

DRUGS (1)
  1. NUCYNTA [Suspect]
     Indication: BACK PAIN
     Dosage: 50 MG 4-6 HOURLY
     Route: 048
     Dates: start: 201204

REACTIONS (3)
  - Weight decreased [Recovered/Resolved]
  - Feeling jittery [Recovered/Resolved]
  - Nausea [Unknown]
